FAERS Safety Report 5449307-X (Version None)
Quarter: 2007Q3

REPORT INFORMATION
  Report Type: 
  Country: None (occurrence: None)
  Receive Date: 20070911
  Receipt Date: 20070905
  Transmission Date: 20080115
  Serious: Yes (Other)
  Sender: FDA-Public Use
  Company Number: US-GENENTECH-247272

PATIENT
  Sex: Female

DRUGS (2)
  1. ACTIVASE [Suspect]
     Indication: VASCULAR GRAFT OCCLUSION
     Dosage: 1.5 MG/HR, UNK
     Route: 042
     Dates: start: 20070905
  2. ACTIVASE [Suspect]
     Indication: PERIPHERAL ISCHAEMIA

REACTIONS (1)
  - COMPARTMENT SYNDROME [None]
